FAERS Safety Report 15195874 (Version 4)
Quarter: 2018Q3

REPORT INFORMATION
  Report Type: Spontaneous
  Country: US (occurrence: US)
  Receive Date: 20180725
  Receipt Date: 20180919
  Transmission Date: 20181010
  Serious: Yes (Hospitalization, Other)
  Sender: FDA-Public Use
  Company Number: US-PFIZER INC-2018297905

PATIENT
  Age: 69 Year
  Sex: Female
  Weight: 60 kg

DRUGS (6)
  1. GLUCOSAMINE [Concomitant]
     Active Substance: GLUCOSAMINE
     Dosage: UNK
  2. SUTENT [Suspect]
     Active Substance: SUNITINIB MALATE
     Dosage: 37.5 MG, CYCLIC [2 WEEKS ON/1 WEEK OFF]
     Dates: start: 20180730, end: 20180905
  3. TRAVATAN [Concomitant]
     Active Substance: TRAVOPROST
     Dosage: UNK
  4. STOOL SOFTENER (DOCUSATE) [Concomitant]
     Active Substance: DOCUSATE
     Dosage: UNK
  5. SUTENT [Suspect]
     Active Substance: SUNITINIB MALATE
     Indication: RENAL CELL CARCINOMA
     Dosage: 50 MG, CYCLIC [28 DAYS ON/14 DAYS OFF]
     Dates: start: 20180709, end: 20180719
  6. FISH OIL [Concomitant]
     Active Substance: FISH OIL
     Dosage: UNK

REACTIONS (22)
  - Tongue blistering [Recovering/Resolving]
  - Blood thyroid stimulating hormone increased [Unknown]
  - Sciatica [Recovering/Resolving]
  - Stomatitis [Recovered/Resolved]
  - Blood lactate dehydrogenase increased [Unknown]
  - Back pain [Recovering/Resolving]
  - Tremor [Unknown]
  - Oral mucosal blistering [Recovering/Resolving]
  - Eating disorder [Unknown]
  - Cerebral venous thrombosis [Unknown]
  - Constipation [Recovered/Resolved]
  - Back disorder [Unknown]
  - Hypertension [Unknown]
  - Headache [Unknown]
  - Pain in extremity [Recovered/Resolved]
  - Arthritis [Recovering/Resolving]
  - Fatigue [Unknown]
  - Dizziness [Unknown]
  - Nerve injury [Unknown]
  - Hyperkeratosis [Unknown]
  - Nodule [Unknown]
  - Speech disorder [Unknown]

NARRATIVE: CASE EVENT DATE: 2018
